FAERS Safety Report 13373282 (Version 1)
Quarter: 2017Q1

REPORT INFORMATION
  Report Type: Report from Study
  Country: NZ (occurrence: NZ)
  Receive Date: 20170327
  Receipt Date: 20170327
  Transmission Date: 20170429
  Serious: Yes (Life-Threatening, Hospitalization, Disabling)
  Sender: FDA-Public Use
  Company Number: NZ-PFIZER INC-2000029815NZ

PATIENT
  Age: 14 Year
  Sex: Female

DRUGS (3)
  1. MIRCETTE [Concomitant]
     Active Substance: DESOGESTREL\ETHINYL ESTRADIOL
     Dosage: UNK
     Dates: start: 19971111
  2. SOMATROPIN [Suspect]
     Active Substance: SOMATROPIN
     Indication: TURNER^S SYNDROME
     Dosage: 15-40 IU/WEEK
     Route: 058
     Dates: start: 19920227, end: 19980504
  3. ETHINYL ESTRADIOL [Concomitant]
     Active Substance: ETHINYL ESTRADIOL
     Dosage: UNK
     Dates: start: 19950830, end: 19971111

REACTIONS (1)
  - Malignant melanoma stage IV [Not Recovered/Not Resolved]

NARRATIVE: CASE EVENT DATE: 199809
